FAERS Safety Report 13677919 (Version 2)
Quarter: 2017Q3

REPORT INFORMATION
  Report Type: Spontaneous
  Country: US (occurrence: US)
  Receive Date: 20170622
  Receipt Date: 20170901
  Transmission Date: 20171127
  Serious: Yes (Hospitalization, Other)
  Sender: FDA-Public Use
  Company Number: US-NOVOPROD-550399

PATIENT
  Age: 60 Year
  Sex: Female
  Weight: 114.29 kg

DRUGS (5)
  1. LEVEMIR [Suspect]
     Active Substance: INSULIN DETEMIR
     Indication: TYPE 2 DIABETES MELLITUS
     Dosage: 38 U, QD HS
     Route: 058
     Dates: start: 201609
  2. NOVOLOG [Concomitant]
     Active Substance: INSULIN ASPART
     Dosage: 10 U, TID
     Route: 058
     Dates: start: 2017
  3. NOVOLOG [Concomitant]
     Active Substance: INSULIN ASPART
     Indication: TYPE 2 DIABETES MELLITUS
     Dosage: 13 U, TID
     Route: 058
     Dates: start: 201609, end: 2017
  4. METFORMIN [Concomitant]
     Active Substance: METFORMIN HYDROCHLORIDE
     Indication: TYPE 2 DIABETES MELLITUS
  5. LEVEMIR [Suspect]
     Active Substance: INSULIN DETEMIR
     Dosage: 40 U, QD HS
     Route: 058

REACTIONS (11)
  - Anaemia [Not Recovered/Not Resolved]
  - Injection site pain [Not Recovered/Not Resolved]
  - Injection site paraesthesia [Not Recovered/Not Resolved]
  - Condition aggravated [Recovering/Resolving]
  - Blood pressure increased [Unknown]
  - Interstitial lung disease [Recovering/Resolving]
  - Pulmonary fibrosis [Recovering/Resolving]
  - Blood glucose decreased [Recovered/Resolved]
  - Blood pressure decreased [Unknown]
  - Headache [Not Recovered/Not Resolved]
  - Weight increased [Not Recovered/Not Resolved]

NARRATIVE: CASE EVENT DATE: 2016
